FAERS Safety Report 6160252-7 (Version None)
Quarter: 2009Q2

REPORT INFORMATION
  Report Type: 
  Country: None (occurrence: None)
  Receive Date: 20090420
  Receipt Date: 20090408
  Transmission Date: 20091009
  Serious: Yes (Other)
  Sender: FDA-Public Use
  Company Number: B0570172A

PATIENT
  Sex: Female

DRUGS (9)
  1. CEFTAZIDIME [Suspect]
     Indication: URINARY TRACT INFECTION
     Dosage: 2G PER DAY
     Route: 030
     Dates: start: 20090324, end: 20090327
  2. SERTRALINE HCL [Concomitant]
     Dosage: 50MG PER DAY
     Route: 048
  3. INSULINE [Concomitant]
     Route: 065
  4. FOLIC ACID [Concomitant]
     Dosage: 400MG PER DAY
     Route: 048
  5. CARVEDILOL [Concomitant]
     Dosage: 6.25MG PER DAY
     Route: 048
  6. OMEPRAZOLE [Concomitant]
     Dosage: 10MG PER DAY
     Route: 048
  7. ASPIRIN [Concomitant]
     Dosage: 100MG PER DAY
     Route: 048
  8. FELODIPINE [Concomitant]
     Dosage: 5MG PER DAY
     Route: 048
  9. QUETIAPINE [Concomitant]
     Dosage: 125MG PER DAY
     Route: 048

REACTIONS (1)
  - DELIRIUM [None]
